FAERS Safety Report 4485053-7 (Version None)
Quarter: 2004Q4

REPORT INFORMATION
  Report Type: 
  Country: None (occurrence: None)
  Receive Date: 20041022
  Receipt Date: 20041022
  Transmission Date: 20050328
  Serious: No
  Sender: FDA-Public Use
  Company Number: None

PATIENT
  Age: 79 Year
  Sex: Male
  Weight: 34.4734 kg

DRUGS (2)
  1. TEQUIN [Suspect]
     Indication: PNEUMONIA
     Dosage: 400MG 1 TIMES INTRAVENOU
     Route: 042
     Dates: start: 20041019, end: 20041019
  2. GLIPIZIDE [Suspect]
     Indication: DIABETES MELLITUS NON-INSULIN-DEPENDENT
     Dosage: 2.5 MG 1 ORAL
     Route: 048
     Dates: start: 20041019, end: 20041019

REACTIONS (2)
  - HYPOGLYCAEMIA [None]
  - MARKEDLY REDUCED DIETARY INTAKE [None]
